FAERS Safety Report 8545145-X (Version None)
Quarter: 2012Q3

REPORT INFORMATION
  Report Type: 
  Country: None (occurrence: None)
  Receive Date: 20120727
  Receipt Date: 20120725
  Transmission Date: 20120928
  Serious: Yes (Life-Threatening, Hospitalization, Other)
  Sender: FDA-Public Use
  Company Number: AU-B.I. PHARMACEUTICALS,INC./RIDGEFIELD-2012-AU-01252AU

PATIENT
  Sex: Male

DRUGS (3)
  1. MICARDIS HCT [Suspect]
     Indication: HYPERTENSION
     Dosage: 80/12.5 MG MANE
     Dates: start: 20110101, end: 20120523
  2. ATENOLOL [Concomitant]
  3. PERINDOPRIL ERBUMINE [Suspect]
     Dosage: 5 MG
     Dates: start: 20100101, end: 20120523

REACTIONS (4)
  - HYPOVOLAEMIC SHOCK [None]
  - DYSPNOEA [None]
  - ANAPHYLACTIC REACTION [None]
  - ANGIOEDEMA [None]
